FAERS Safety Report 12299565 (Version 1)
Quarter: 2016Q2

REPORT INFORMATION
  Report Type: Spontaneous
  Country: US (occurrence: US)
  Receive Date: 20160425
  Receipt Date: 20160425
  Transmission Date: 20160815
  Serious: Yes (Death, Hospitalization)
  Sender: FDA-Public Use
  Company Number: US-JNJFOC-20160412988

PATIENT
  Age: 72 Year
  Sex: Female

DRUGS (6)
  1. PREDNISONE. [Suspect]
     Active Substance: PREDNISONE
     Indication: PRODUCT USED FOR UNKNOWN INDICATION
     Route: 065
     Dates: start: 20160315
  2. PREDNISONE. [Suspect]
     Active Substance: PREDNISONE
     Indication: PRODUCT USED FOR UNKNOWN INDICATION
     Route: 065
     Dates: start: 20160324
  3. XARELTO [Suspect]
     Active Substance: RIVAROXABAN
     Indication: ATRIAL FIBRILLATION
     Route: 048
     Dates: start: 201603, end: 20160328
  4. XARELTO [Suspect]
     Active Substance: RIVAROXABAN
     Indication: CEREBROVASCULAR ACCIDENT PROPHYLAXIS
     Route: 048
     Dates: start: 201603, end: 20160328
  5. PREDNISONE. [Suspect]
     Active Substance: PREDNISONE
     Indication: PRODUCT USED FOR UNKNOWN INDICATION
     Route: 065
     Dates: start: 20160328
  6. PREDNISONE. [Suspect]
     Active Substance: PREDNISONE
     Indication: PRODUCT USED FOR UNKNOWN INDICATION
     Route: 065

REACTIONS (12)
  - Pleural effusion [Unknown]
  - Stomatitis [Unknown]
  - Death [Fatal]
  - Frequent bowel movements [Unknown]
  - Hallucination [Unknown]
  - Hernia [Unknown]
  - Confusional state [Unknown]
  - Atrial fibrillation [Unknown]
  - Skin haemorrhage [Unknown]
  - Systemic lupus erythematosus [Recovering/Resolving]
  - Drug interaction [Unknown]
  - Atrial flutter [Unknown]

NARRATIVE: CASE EVENT DATE: 20160311
